FAERS Safety Report 17069535 (Version 1)
Quarter: 2019Q4

REPORT INFORMATION
  Report Type: Spontaneous
  Country: CA (occurrence: CA)
  Receive Date: 20191125
  Receipt Date: 20191125
  Transmission Date: 20200122
  Serious: Yes (Other)
  Sender: FDA-Public Use
  Company Number: CA-TEVA-2019-CA-1140088

PATIENT
  Age: 32 Year
  Sex: Male

DRUGS (1)
  1. VALACICLOVIR [Suspect]
     Active Substance: VALACYCLOVIR HYDROCHLORIDE
     Indication: HERPES ZOSTER
     Dosage: 3000 MILLIGRAM DAILY;
     Route: 048

REACTIONS (3)
  - Generalised tonic-clonic seizure [Recovering/Resolving]
  - Spinal fracture [Recovering/Resolving]
  - Alcohol interaction [Recovering/Resolving]
